FAERS Safety Report 5895294-X (Version None)
Quarter: 2008Q3

REPORT INFORMATION
  Report Type: 
  Country: None (occurrence: None)
  Receive Date: 20080715
  Receipt Date: 20080715
  Transmission Date: 20090109
  Serious: No
  Sender: FDA-Public Use
  Company Number: None

PATIENT
  Age: 30 Year
  Sex: Female
  Weight: 56.6996 kg

DRUGS (1)
  1. CREST PRO-HEALTH MOUTHWASH PROCTOR AND GAMBLE [Suspect]
     Indication: DENTAL DISORDER PROPHYLAXIS
     Dosage: CAP FULL 1X DAY PO
     Route: 048
     Dates: start: 20080706, end: 20080709

REACTIONS (2)
  - APHTHOUS STOMATITIS [None]
  - CAUSTIC INJURY [None]
